FAERS Safety Report 25141372 (Version 2)
Quarter: 2025Q4

REPORT INFORMATION
  Report Type: Spontaneous
  Country: EU (occurrence: EU)
  Receive Date: 20250331
  Receipt Date: 20251106
  Transmission Date: 20260118
  Serious: Yes (Hospitalization)
  Sender: PFIZER
  Company Number: None

PATIENT
  Age: 55 Year
  Sex: Male
  Weight: 74 kg

DRUGS (6)
  1. TIGECYCLINE [Suspect]
     Active Substance: TIGECYCLINE
     Indication: Legionella infection
     Dosage: 100 MG, 2X/DAY (EVERY 12 HOURS)
     Route: 042
     Dates: start: 20250131, end: 20250215
  2. BACTRIM [Suspect]
     Active Substance: SULFAMETHOXAZOLE\TRIMETHOPRIM
     Indication: Legionella infection
     Dosage: 1200 MG, 3X/DAY (EVERY 8 HOURS)
     Route: 042
     Dates: start: 20250122, end: 20250217
  3. IOMERON [Suspect]
     Active Substance: IOMEPROL
     Indication: Imaging procedure
     Dosage: 80 ML, SINGLE
     Route: 042
     Dates: start: 20250204, end: 20250204
  4. IOMERON [Suspect]
     Active Substance: IOMEPROL
     Dosage: 80 ML, SINGLE
     Route: 042
     Dates: start: 20250106, end: 20250106
  5. IOMERON [Suspect]
     Active Substance: IOMEPROL
     Dosage: 80 ML, SINGLE
     Route: 042
     Dates: start: 20250110, end: 20250110
  6. IOMERON [Suspect]
     Active Substance: IOMEPROL
     Dosage: 80 ML, SINGLE
     Route: 042
     Dates: start: 20250119, end: 20250119

REACTIONS (2)
  - Rash morbilliform [Recovered/Resolved]
  - Off label use [Unknown]

NARRATIVE: CASE EVENT DATE: 20250131
